FAERS Safety Report 23219491 (Version 2)
Quarter: 2024Q1

REPORT INFORMATION
  Report Type: Report from Study
  Country: US (occurrence: US)
  Receive Date: 20231122
  Receipt Date: 20240102
  Transmission Date: 20240410
  Serious: Yes (Hospitalization)
  Sender: FDA-Public Use
  Company Number: US-ABBVIE-5494422

PATIENT
  Age: 66 Year
  Sex: Male

DRUGS (2)
  1. VENCLEXTA [Suspect]
     Active Substance: VENETOCLAX
     Indication: Acute myeloid leukaemia
     Dosage: FORM STRENGTH: 50MG
     Route: 048
     Dates: start: 20231122
  2. VENCLEXTA [Suspect]
     Active Substance: VENETOCLAX
     Indication: Acute myeloid leukaemia
     Dosage: FORM STRENGTH:  100 MILLIGRAM
     Route: 048

REACTIONS (2)
  - Speech disorder [Unknown]
  - Off label use [Unknown]

NARRATIVE: CASE EVENT DATE: 20231122
